FAERS Safety Report 19269490 (Version 1)
Quarter: 2021Q2

REPORT INFORMATION
  Report Type: Spontaneous
  Country: US (occurrence: US)
  Receive Date: 20210518
  Receipt Date: 20210518
  Transmission Date: 20210717
  Serious: No
  Sender: FDA-Public Use
  Company Number: US-LEO PHARMA-336274

PATIENT
  Sex: Female

DRUGS (1)
  1. ENSTILAR [Suspect]
     Active Substance: BETAMETHASONE DIPROPIONATE\CALCIPOTRIENE HYDRATE
     Indication: PSORIASIS
     Dosage: (0.005%/0.064%)

REACTIONS (3)
  - Dizziness [Unknown]
  - Psoriasis [Unknown]
  - Wrong technique in product usage process [Unknown]
